FAERS Safety Report 8295269-X (Version None)
Quarter: 2012Q2

REPORT INFORMATION
  Report Type: 
  Country: None (occurrence: None)
  Receive Date: 20120418
  Receipt Date: 20120411
  Transmission Date: 20120825
  Serious: Yes (Hospitalization)
  Sender: FDA-Public Use
  Company Number: US-UCBSA-055225

PATIENT
  Age: 60 Year
  Sex: Female

DRUGS (3)
  1. TRILEPTAL [Concomitant]
  2. VIMPAT [Suspect]
     Indication: CONVULSION
     Dates: start: 20120408
  3. VIMPAT [Suspect]
     Dates: start: 20120401, end: 20120408

REACTIONS (3)
  - OEDEMA PERIPHERAL [None]
  - FLUID RETENTION [None]
  - CONVULSION [None]
